FAERS Safety Report 8188386-6 (Version None)
Quarter: 2012Q1

REPORT INFORMATION
  Report Type: 
  Country: None (occurrence: None)
  Receive Date: 20120306
  Receipt Date: 20120221
  Transmission Date: 20120608
  Serious: Yes (Hospitalization, Other)
  Sender: FDA-Public Use
  Company Number: PHHY2011DK107456

PATIENT
  Sex: Male

DRUGS (12)
  1. AMARYL [Concomitant]
  2. ALBUMIN (HUMAN) [Concomitant]
  3. FRAGMIN [Concomitant]
  4. ALLOPURINOL [Concomitant]
  5. GLEEVEC [Suspect]
     Dosage: 400 MG, DAILY
     Dates: start: 20091022
  6. WARFARIN SODIUM [Concomitant]
  7. FUROSEMIDE [Concomitant]
  8. POTASSIUM CHLORIDE [Concomitant]
  9. GLEEVEC [Suspect]
     Dosage: 200 MG, QD
     Dates: start: 20120208
  10. LANTUS [Concomitant]
  11. INSPRA [Concomitant]
  12. CARVEDILOL [Concomitant]

REACTIONS (11)
  - HEPATIC VEIN THROMBOSIS [None]
  - DIABETES MELLITUS [None]
  - ABDOMINAL DISTENSION [None]
  - THIRST [None]
  - URINARY TRACT INFECTION [None]
  - HYPERGLYCAEMIA [None]
  - POLYURIA [None]
  - PLEURAL EFFUSION [None]
  - WEIGHT INCREASED [None]
  - ASCITES [None]
  - DYSPNOEA [None]
